FAERS Safety Report 5454038-6 (Version None)
Quarter: 2007Q3

REPORT INFORMATION
  Report Type: 
  Country: None (occurrence: None)
  Receive Date: 20070917
  Receipt Date: 20070330
  Transmission Date: 20080115
  Serious: Yes (Hospitalization)
  Sender: FDA-Public Use
  Company Number: US-ASTRAZENECA-2006UW04349

PATIENT
  Age: 17471 Day
  Sex: Female
  Weight: 63.5 kg

DRUGS (12)
  1. SEROQUEL [Suspect]
     Indication: BIPOLAR DISORDER
     Dosage: 100-300 MG DAILY PO
     Route: 048
     Dates: start: 20030524, end: 20051101
  2. SEROQUEL [Suspect]
     Indication: DEPRESSION
     Dosage: 100-300 MG DAILY PO
     Route: 048
     Dates: start: 20030524, end: 20051101
  3. SEROQUEL [Suspect]
     Indication: INSOMNIA
     Dosage: 100-300 MG DAILY PO
     Route: 048
     Dates: start: 20030524, end: 20051101
  4. GLUCOPHAGE [Concomitant]
     Indication: TYPE 2 DIABETES MELLITUS
  5. PROZAC [Concomitant]
  6. CYMBALTA [Concomitant]
  7. LAMICTAL [Concomitant]
  8. KLONAPIN [Concomitant]
  9. ATIVAN [Concomitant]
  10. CONCERTA [Concomitant]
  11. BUSPAR [Concomitant]
  12. TEGROTAL [Concomitant]

REACTIONS (2)
  - DIABETES MELLITUS [None]
  - PANCREATITIS ACUTE [None]
